FAERS Safety Report 18577793 (Version 1)
Quarter: 2020Q4

REPORT INFORMATION
  Report Type: Report from Study
  Country: GB (occurrence: GB)
  Receive Date: 20201204
  Receipt Date: 20201204
  Transmission Date: 20210114
  Serious: Yes (Death, Other)
  Sender: FDA-Public Use
  Company Number: GB-BAUSCH-BL-2020-027434

PATIENT
  Age: 75 Year
  Sex: Female

DRUGS (5)
  1. LEVOTHYROXINE SODIUM. [Concomitant]
     Active Substance: LEVOTHYROXINE SODIUM
     Indication: PRODUCT USED FOR UNKNOWN INDICATION
  2. METFORMIN HYDROCHLORIDE. [Concomitant]
     Active Substance: METFORMIN HYDROCHLORIDE
     Indication: PRODUCT USED FOR UNKNOWN INDICATION
  3. SIMVASTATIN. [Concomitant]
     Active Substance: SIMVASTATIN
     Indication: PRODUCT USED FOR UNKNOWN INDICATION
  4. KYNTHEUM [Suspect]
     Active Substance: BRODALUMAB
     Indication: PSORIASIS
     Dosage: WEEK 0, 1, 2 THEN EVERY TWO WEEKS
     Route: 058
     Dates: start: 20200106, end: 20200914
  5. RAMIPRIL. [Concomitant]
     Active Substance: RAMIPRIL
     Indication: PRODUCT USED FOR UNKNOWN INDICATION

REACTIONS (4)
  - Death [Fatal]
  - Diverticulitis [Not Recovered/Not Resolved]
  - Therapy interrupted [Unknown]
  - Weight decreased [Unknown]

NARRATIVE: CASE EVENT DATE: 2020
